FAERS Safety Report 8850836 (Version 3)
Quarter: 2013Q1

REPORT INFORMATION
  Report Type: Spontaneous
  Country: US (occurrence: US)
  Receive Date: 20121019
  Receipt Date: 20130102
  Transmission Date: 20140127
  Serious: Yes (Hospitalization)
  Sender: FDA-Public Use
  Company Number: US-BAYER-2012-106918

PATIENT
  Age: 26 Year
  Sex: Female
  Weight: 61.22 kg

DRUGS (10)
  1. YAZ [Suspect]
     Indication: CONTRACEPTION
     Dosage: UNK
     Dates: start: 200901, end: 20090914
  2. METHOCARBAMOL [METHOCARBAMOL] [Concomitant]
     Indication: MUSCLE SPASMS
     Dosage: 500 MG, Q 8 HRS AS NEEDED
     Dates: start: 20090912
  3. CYCLOBENZAPRINE [Concomitant]
     Dosage: 10 MG, Q 8 HRS AS NEEDED
     Dates: start: 20090912
  4. TYLENOL WITH CODEINE [Concomitant]
     Dosage: 300MG/30MG TAB  AS NEEDED
     Dates: start: 20090912
  5. MEDROL [METHYLPREDNISOLONE] [Concomitant]
     Dosage: 4 MG, UNK
     Dates: start: 20090912
  6. SUDAFED [PSEUDOEPHEDRINE HYDROCHLORIDE] [Concomitant]
     Dosage: 30 MG, Q 6 HRS AS NEEDED
     Dates: start: 20090912
  7. CLARITIN [Concomitant]
     Dosage: 10 MG, ONE DAILY
     Dates: start: 20090912
  8. T [Concomitant]
  9. TRAMADOL [Concomitant]
  10. FLEXERIL [Concomitant]
     Indication: BACK PAIN

REACTIONS (5)
  - Deep vein thrombosis [Recovering/Resolving]
  - Pulmonary embolism [None]
  - Pain in extremity [None]
  - Local swelling [None]
  - Post thrombotic syndrome [None]
